FAERS Safety Report 5343248-4 (Version None)
Quarter: 2007Q2

REPORT INFORMATION
  Report Type: 
  Country: None (occurrence: None)
  Receive Date: 20070416
  Receipt Date: 20070209
  Transmission Date: 20071010
  Serious: No
  Sender: FDA-Public Use
  Company Number: 2007SP000462

PATIENT
  Age: 69 Year
  Sex: Female

DRUGS (5)
  1. LUNESTA [Suspect]
     Indication: INSOMNIA
     Dosage: 3 MG; PRN; ORAL
     Route: 048
     Dates: start: 20051201
  2. METOPROLOL SUCCINATE [Concomitant]
  3. DIGITEK [Concomitant]
  4. ATIVAN [Concomitant]
  5. FUROSEMIDE [Concomitant]

REACTIONS (1)
  - DYSGEUSIA [None]
